FAERS Safety Report 7206260-6 (Version None)
Quarter: 2011Q1

REPORT INFORMATION
  Report Type: 
  Country: None (occurrence: None)
  Receive Date: 20110103
  Receipt Date: 20101221
  Transmission Date: 20110831
  Serious: Yes (Hospitalization, Disabling)
  Sender: FDA-Public Use
  Company Number: PHHY2010RU75349

PATIENT
  Sex: Female

DRUGS (6)
  1. METHOTREXATE [Concomitant]
     Dosage: 10 MG, ONCE IN 2 WEEKS FOR 2 YEARS
     Route: 030
  2. OSTEOGENON [Concomitant]
  3. PREDNISOLONE [Concomitant]
     Dosage: 5 MG, QD
  4. MIACALCIN [Concomitant]
  5. CALCIUM D3 [Concomitant]
  6. ACLASTA [Suspect]
     Indication: OSTEOPOROSIS
     Dosage: 5 MG
     Route: 042
     Dates: start: 20100923

REACTIONS (4)
  - FRACTURE DISPLACEMENT [None]
  - WALKING AID USER [None]
  - HIP ARTHROPLASTY [None]
  - FEMORAL NECK FRACTURE [None]
